FAERS Safety Report 24178409 (Version 1)
Quarter: 2024Q3

REPORT INFORMATION
  Report Type: Spontaneous
  Country: US (occurrence: US)
  Receive Date: 20240806
  Receipt Date: 20240806
  Transmission Date: 20241016
  Serious: Yes (Hospitalization)
  Sender: CHEPLAPHARM
  Company Number: US-CHEPLA-2024010026

PATIENT
  Sex: Male

DRUGS (4)
  1. CLONAZEPAM [Suspect]
     Active Substance: CLONAZEPAM
  2. ESCITALOPRAM [Suspect]
     Active Substance: ESCITALOPRAM OXALATE
  3. GABAPENTIN [Suspect]
     Active Substance: GABAPENTIN
  4. METHADONE [Suspect]
     Active Substance: METHADONE HYDROCHLORIDE

REACTIONS (15)
  - Apnoea [Recovered/Resolved]
  - Respiratory distress [Recovered/Resolved]
  - Hypotonia [Recovered/Resolved]
  - Apgar score low [Recovered/Resolved]
  - Decreased activity [Recovered/Resolved]
  - Tremor [Recovered/Resolved]
  - Hypertonia [Recovered/Resolved]
  - Poor sucking reflex [Recovered/Resolved]
  - Feeling jittery [Recovered/Resolved]
  - Infantile back arching [Recovered/Resolved]
  - Breath holding [Recovered/Resolved]
  - Tongue thrust [Recovered/Resolved]
  - Drug withdrawal syndrome neonatal [Recovered/Resolved]
  - Feeding disorder [Recovered/Resolved]
  - Foetal exposure during pregnancy [Recovered/Resolved]
